FAERS Safety Report 4848776-3 (Version None)
Quarter: 2005Q4

REPORT INFORMATION
  Report Type: 
  Country: None (occurrence: None)
  Receive Date: 20051206
  Receipt Date: 20051121
  Transmission Date: 20060501
  Serious: Yes (Life-Threatening)
  Sender: FDA-Public Use
  Company Number: IT200511002190

PATIENT
  Age: 82 Year
  Sex: Female

DRUGS (6)
  1. RALOXIFENE HCL [Suspect]
     Indication: OSTEOPOROSIS
     Dosage: 60 MG, DAILY (1/D), ORAL
     Route: 048
     Dates: start: 20041101, end: 20051101
  2. IBUSTRIN (INDOBUFEN SODIUM) TABLET [Concomitant]
  3. SULODEXIDE (SULODEXIDE) CAPSULE [Concomitant]
  4. COSOPT (DORZOLAMIDE HYDROCHLORIDE, TIMOLOL MALEATE) SOLUTION [Concomitant]
  5. TRAVATAN (TRAVOPROST) SOLUTION [Concomitant]
  6. DIDROGYL (CALCIFEDIOL) [Concomitant]

REACTIONS (1)
  - CEREBRAL HAEMORRHAGE [None]
